FAERS Safety Report 9241503 (Version 2)
Quarter: 2013Q2

REPORT INFORMATION
  Report Type: Spontaneous
  Country: US (occurrence: US)
  Receive Date: 20130419
  Receipt Date: 20130501
  Transmission Date: 20140414
  Serious: Yes (Other)
  Sender: FDA-Public Use
  Company Number: US-PURDUE-USA-2013-0101088

PATIENT
  Sex: Female

DRUGS (2)
  1. BUTRANS [Suspect]
     Indication: PRODUCT USED FOR UNKNOWN INDICATION
     Dosage: 20 MCG/HR, WEEKLY
     Route: 062
  2. BUTRANS [Suspect]
     Dosage: 10 UNK, UNK

REACTIONS (3)
  - Chemical injury [Unknown]
  - Malaise [Unknown]
  - Product quality issue [Unknown]
